FAERS Safety Report 12659290 (Version 1)
Quarter: 2016Q3

REPORT INFORMATION
  Report Type: Spontaneous
  Country: GB (occurrence: GB)
  Receive Date: 20160817
  Receipt Date: 20160817
  Transmission Date: 20161109
  Serious: Yes (Other)
  Sender: FDA-Public Use
  Company Number: GB-BAYER-2016-156765

PATIENT
  Age: 42 Year
  Sex: Male
  Weight: 64 kg

DRUGS (4)
  1. DIAZEPAM. [Concomitant]
     Active Substance: DIAZEPAM
     Dosage: 2 DF, TID
     Dates: start: 20160608, end: 20160615
  2. NAPROXEN SODIUM HIGH DOSE (} 220 MG) [Suspect]
     Active Substance: NAPROXEN SODIUM
     Dosage: UNK
     Dates: start: 20160606
  3. DIHYDROCODEINE [Concomitant]
     Active Substance: DIHYDROCODEINE
     Dosage: 1 DF, UNK
     Dates: start: 20160608, end: 20160609
  4. LANSOPRAZOLE. [Concomitant]
     Active Substance: LANSOPRAZOLE
     Dosage: 1 DF, QD
     Dates: start: 20160601, end: 20160629

REACTIONS (2)
  - Dysphagia [Recovered/Resolved]
  - Oropharyngeal pain [Recovered/Resolved]

NARRATIVE: CASE EVENT DATE: 20160803
